FAERS Safety Report 7961839-9 (Version None)
Quarter: 2011Q4

REPORT INFORMATION
  Report Type: 
  Country: None (occurrence: None)
  Receive Date: 20111207
  Receipt Date: 20111207
  Transmission Date: 20120403
  Serious: Yes (Disabling)
  Sender: FDA-Public Use
  Company Number: None

PATIENT
  Sex: Male
  Weight: 77.11 kg

DRUGS (2)
  1. LIPITOR [Concomitant]
     Indication: LOW DENSITY LIPOPROTEIN INCREASED
     Dosage: 1
     Route: 048
     Dates: start: 20111114, end: 20111121
  2. LIPITOR [Suspect]
     Indication: LOW DENSITY LIPOPROTEIN INCREASED
     Dosage: 1
     Route: 048
     Dates: start: 20100928, end: 20111113

REACTIONS (2)
  - ARTHRALGIA [None]
  - ARTHROPATHY [None]
